FAERS Safety Report 17782820 (Version 6)
Quarter: 2022Q3

REPORT INFORMATION
  Report Type: Report from Study
  Country: JP (occurrence: JP)
  Receive Date: 20200514
  Receipt Date: 20220714
  Transmission Date: 20221026
  Serious: Yes (Hospitalization)
  Sender: FDA-Public Use
  Company Number: JP-CHUGAI-A2020020547ROCHE

PATIENT
  Age: 73 Year
  Sex: Female
  Weight: 48 kg

DRUGS (22)
  1. ATEZOLIZUMAB [Suspect]
     Active Substance: ATEZOLIZUMAB
     Indication: Non-small cell lung cancer
     Route: 041
     Dates: start: 20191226, end: 20200117
  2. ATEZOLIZUMAB [Suspect]
     Active Substance: ATEZOLIZUMAB
     Dosage: MOST RECENT DOSE RECEIVED ON 06/MAR/2020
     Route: 041
     Dates: start: 20200201
  3. BEVACIZUMAB [Suspect]
     Active Substance: BEVACIZUMAB
     Indication: Non-small cell lung cancer
     Route: 041
     Dates: start: 20191226, end: 20200117
  4. BEVACIZUMAB [Suspect]
     Active Substance: BEVACIZUMAB
     Dosage: MOST RECENT DOSE RECEIVED ON 06/MAR/2020
     Route: 041
     Dates: start: 20200214
  5. PEMETREXED [Suspect]
     Active Substance: PEMETREXED
     Indication: Lung carcinoma cell type unspecified stage IV
     Route: 041
     Dates: start: 20191226, end: 20200117
  6. PEMETREXED [Suspect]
     Active Substance: PEMETREXED
     Route: 041
     Dates: start: 20200201, end: 20200306
  7. CARBOPLATIN [Suspect]
     Active Substance: CARBOPLATIN
     Indication: Lung carcinoma cell type unspecified stage IV
     Dosage: AUC5
     Route: 041
     Dates: start: 20191226, end: 20200117
  8. CARBOPLATIN [Suspect]
     Active Substance: CARBOPLATIN
     Dosage: AUC5, MOST RECENT DOSE RECEIVED ON 06/MAR/2020
     Route: 041
     Dates: start: 20200214
  9. CALONAL [Suspect]
     Active Substance: ACETAMINOPHEN
     Indication: Product used for unknown indication
     Dosage: DOSAGE IS UNCERTAIN
     Route: 065
  10. AVASTIN [Concomitant]
     Active Substance: BEVACIZUMAB
     Indication: Lung carcinoma cell type unspecified stage IV
     Dosage: 15MG/KG,ONCE IN3WEEK
     Dates: start: 20191226, end: 20200306
  11. ALIMTA [Concomitant]
     Active Substance: PEMETREXED DISODIUM
     Indication: Lung carcinoma cell type unspecified stage IV
     Dosage: 500MG/M2,ONCE IN3WEEK
     Route: 041
     Dates: start: 20191226, end: 20200306
  12. CARBOPLATIN [Concomitant]
     Active Substance: CARBOPLATIN
     Indication: Lung carcinoma cell type unspecified stage IV
     Dosage: AUC5
     Route: 041
     Dates: start: 20191226
  13. BETAMETHASONE BUTYRATE PROPIONATE [Concomitant]
     Active Substance: BETAMETHASONE BUTYRATE PROPIONATE
     Indication: Dermatitis exfoliative generalised
     Dosage: PROPER SPREADING
     Route: 061
     Dates: start: 20200115
  14. HEPARINOID [Concomitant]
     Indication: Dermatitis exfoliative generalised
     Dosage: PROPER SPREADING
     Route: 061
     Dates: start: 20200115
  15. CROTAMITON [Concomitant]
     Active Substance: CROTAMITON
     Indication: Dermatitis exfoliative generalised
     Dosage: PROPER SPREADING
     Route: 061
     Dates: start: 20200115
  16. CLOBETASOL PROPIONATE [Concomitant]
     Active Substance: CLOBETASOL PROPIONATE
     Indication: Dermatitis exfoliative generalised
     Dosage: PROPER SPREADING
     Route: 061
     Dates: start: 20200403
  17. BILASTINE [Concomitant]
     Active Substance: BILASTINE
     Indication: Dermatitis exfoliative generalised
     Dosage: 20MG,ONCE IN1DAY
     Route: 048
     Dates: start: 20200306
  18. PREDNISOLONE [Concomitant]
     Active Substance: PREDNISOLONE
     Indication: Dermatitis exfoliative generalised
     Dosage: 25MG,ONCE IN1DAY
     Route: 048
     Dates: start: 20200403
  19. HYDROXOCOBALAMIN [Concomitant]
     Active Substance: HYDROXOCOBALAMIN
     Indication: Premedication
     Dosage: 500MG/M2,ONCE IN3WEEK
     Route: 030
     Dates: start: 20191219, end: 20200306
  20. NEXIUM [Concomitant]
     Active Substance: ESOMEPRAZOLE MAGNESIUM
     Indication: Gastritis prophylaxis
     Dosage: 20MG,ONCE IN1DAY
     Route: 048
     Dates: start: 20200410
  21. SULFAMETHOXAZOLE [Concomitant]
     Active Substance: SULFAMETHOXAZOLE
     Indication: Infection prophylaxis
     Dosage: DOSE INTERVAL UNCERTAINTY
     Route: 048
     Dates: start: 20200403
  22. FRESMIN S [HYDROXOCOBALAMIN ACETATE] [Concomitant]
     Indication: Premedication
     Dosage: 1ML,ONCE IN9WEEK
     Route: 030
     Dates: start: 20191219

REACTIONS (5)
  - Colitis [Not Recovered/Not Resolved]
  - Lower gastrointestinal haemorrhage [Recovering/Resolving]
  - Disseminated intravascular coagulation [Recovered/Resolved]
  - Cholangitis [Not Recovered/Not Resolved]
  - Meningoencephalitis herpetic [Not Recovered/Not Resolved]

NARRATIVE: CASE EVENT DATE: 20200416
